FAERS Safety Report 6554522-8 (Version None)
Quarter: 2010Q1

REPORT INFORMATION
  Report Type: 
  Country: None (occurrence: None)
  Receive Date: 20100127
  Receipt Date: 20100118
  Transmission Date: 20100710
  Serious: Yes (Hospitalization)
  Sender: FDA-Public Use
  Company Number: PHEH2009US10874

PATIENT
  Sex: Female
  Weight: 78.458 kg

DRUGS (5)
  1. EXJADE [Suspect]
     Indication: SICKLE CELL ANAEMIA
     Dosage: 1625 MG, QD
     Route: 048
     Dates: start: 20090701
  2. EXJADE [Suspect]
     Indication: IRON OVERLOAD
     Dosage: 1625 MG, QD
     Route: 048
  3. FOLIC ACID [Concomitant]
     Dosage: UNK, UNK
     Route: 065
  4. HYDREA [Concomitant]
     Dosage: 500 MG, QD
     Route: 065
  5. COUMADIN [Concomitant]
     Indication: VENOUS THROMBOSIS
     Dosage: UNK, UNK
     Route: 065

REACTIONS (6)
  - ARTHRALGIA [None]
  - DIARRHOEA [None]
  - LEUKOCYTOSIS [None]
  - PLATELET COUNT INCREASED [None]
  - SICKLE CELL ANAEMIA WITH CRISIS [None]
  - URINARY TRACT INFECTION [None]
